FAERS Safety Report 19715975 (Version 1)
Quarter: 2021Q3

REPORT INFORMATION
  Report Type: Spontaneous
  Country: US (occurrence: US)
  Receive Date: 20210818
  Receipt Date: 20210818
  Transmission Date: 20211014
  Serious: No
  Sender: FDA-Public Use
  Company Number: US-LOREAL USA PRODUCTS, INC.-2021LOR00007

PATIENT
  Sex: Female

DRUGS (2)
  1. TOLERIANE ULTRA XEU [COSMETICS] [Suspect]
     Active Substance: COSMETICS
     Dosage: UNK
  2. LA ROCHE POSAY LAB. DERMATOLOGIQUE ANTHELIOS SX DAILY MOISTURIZING SUNSCREEN SPF 15 [Suspect]
     Active Substance: AVOBENZONE\ECAMSULE\OCTOCRYLENE
     Dosage: UNK

REACTIONS (1)
  - Pruritus [Unknown]
